FAERS Safety Report 16673406 (Version 1)
Quarter: 2019Q3

REPORT INFORMATION
  Report Type: Spontaneous
  Country: US (occurrence: US)
  Receive Date: 20190620
  Receipt Date: 20190620
  Transmission Date: 20191004
  Serious: No
  Sender: FDA-Public Use
  Company Number: None

PATIENT
  Age: 26 Year
  Sex: Female

DRUGS (2)
  1. NEUTROGENA OIL-FREE MOISTURE SUNSCREEN BROAD SPECTRUM SPF 35 [Suspect]
     Active Substance: AVOBENZONE\HOMOSALATE\OCTISALATE\OCTOCRYLENE\OXYBENZONE
     Indication: PROPHYLAXIS AGAINST SOLAR RADIATION
     Route: 061
  2. NEUTROGENA HEALTHY DEFENSE DAILY MOISTURIZER WITH SUNSCREEN BROAD SPECTRUM SPF 50 [Suspect]
     Active Substance: TITANIUM DIOXIDE\ZINC OXIDE

REACTIONS (4)
  - Pruritus [None]
  - Skin tightness [None]
  - Dry skin [None]
  - Skin exfoliation [None]
